FAERS Safety Report 4908042-4 (Version None)
Quarter: 2006Q1

REPORT INFORMATION
  Report Type: 
  Country: None (occurrence: None)
  Receive Date: 20060207
  Receipt Date: 20060127
  Transmission Date: 20060701
  Serious: Yes (Hospitalization)
  Sender: FDA-Public Use
  Company Number: 2006RR-01560

PATIENT
  Age: 22 Year
  Sex: Male

DRUGS (4)
  1. FLUOXETINE [Suspect]
     Indication: BIPOLAR I DISORDER
     Dosage: 20 MG, QD
  2. DEXTROMETHORPHAN (DEXTROMETHORPHAN) [Suspect]
     Indication: INTENTIONAL DRUG MISUSE
     Dosage: ^SEVERAL BOTTLES^, ORAL
     Route: 048
  3. LITHIUM CARBONATE [Suspect]
     Indication: BIPOLAR I DISORDER
     Dosage: 600 MG, BID
  4. CLONAZEPAM [Concomitant]

REACTIONS (18)
  - AGITATION [None]
  - AKATHISIA [None]
  - BLOOD UREA DECREASED [None]
  - DRUG INTERACTION [None]
  - HAEMATOCRIT DECREASED [None]
  - HEART RATE INCREASED [None]
  - HYPERHIDROSIS [None]
  - HYPERREFLEXIA [None]
  - HYPERTENSION [None]
  - HYPERTONIA [None]
  - INTENTIONAL DRUG MISUSE [None]
  - MYDRIASIS [None]
  - MYOCLONUS [None]
  - NYSTAGMUS [None]
  - PYREXIA [None]
  - SEROTONIN SYNDROME [None]
  - TACHYCARDIA [None]
  - TREMOR [None]
